FAERS Safety Report 8589348-7 (Version None)
Quarter: 2012Q3

REPORT INFORMATION
  Report Type: 
  Country: None (occurrence: None)
  Receive Date: 20120813
  Receipt Date: 20120802
  Transmission Date: 20120928
  Serious: Yes (Hospitalization, Other)
  Sender: FDA-Public Use
  Company Number: US-BAXTER-2012BAX012768

PATIENT
  Sex: Male

DRUGS (3)
  1. EXTRANEAL [Suspect]
     Indication: PERITONEAL DIALYSIS
     Route: 033
  2. DIANEAL [Suspect]
     Indication: PERITONEAL DIALYSIS
     Route: 033
  3. AMBIEN [Suspect]
     Route: 048

REACTIONS (5)
  - INSOMNIA [None]
  - HAEMOPTYSIS [None]
  - PLASMACYTOMA [None]
  - ANAEMIA [None]
  - ANXIETY [None]
